FAERS Safety Report 21303789 (Version 1)
Quarter: 2022Q3

REPORT INFORMATION
  Report Type: Other
  Country: US (occurrence: US)
  Receive Date: 20220907
  Receipt Date: 20220907
  Transmission Date: 20221027
  Serious: No
  Sender: FDA-Public Use
  Company Number: US-LEADIANT BIOSCIENCES, INC.-2021STPI000216

PATIENT
  Sex: Male

DRUGS (1)
  1. MATULANE [Suspect]
     Active Substance: PROCARBAZINE HYDROCHLORIDE
     Indication: Non-Hodgkin^s lymphoma
     Dosage: 150 MILLIGRAM DAILY FOR 4 DAYS ON EVERY 14 DAY CYCLE
     Route: 048
     Dates: start: 20210618

REACTIONS (4)
  - Nausea [Unknown]
  - Headache [Unknown]
  - Fatigue [Unknown]
  - Product dose omission issue [Unknown]
